FAERS Safety Report 7540992-5 (Version None)
Quarter: 2011Q2

REPORT INFORMATION
  Report Type: 
  Country: None (occurrence: None)
  Receive Date: 20110610
  Receipt Date: 20110607
  Transmission Date: 20111010
  Serious: Yes (Death, Other)
  Sender: FDA-Public Use
  Company Number: US-B.I. PHARMACEUTICALS,INC./RIDGEFIELD-2011-BP-00650BP

PATIENT
  Age: 77 Year
  Sex: Male
  Weight: 68.04 kg

DRUGS (15)
  1. PRADAXA [Suspect]
  2. ASPIRIN [Concomitant]
  3. COREG [Concomitant]
  4. LASIX [Concomitant]
  5. LIPITOR [Concomitant]
  6. PRADAXA [Suspect]
     Indication: CEREBROVASCULAR ACCIDENT
  7. ALDACTONE [Concomitant]
  8. PRADAXA [Suspect]
     Indication: ATRIAL FIBRILLATION
     Dosage: 300 MG
  9. HYZAAR [Concomitant]
  10. LOVASTATIN [Concomitant]
  11. METFORMIN HCL [Concomitant]
  12. MULTI-VITAMINS [Concomitant]
  13. PRADAXA [Suspect]
     Indication: HYPERTENSION
  14. KLONOPIN [Concomitant]
  15. FERROUS SULFATE TAB [Concomitant]

REACTIONS (7)
  - BLADDER MASS [None]
  - DISSEMINATED INTRAVASCULAR COAGULATION [None]
  - URINARY TRACT OBSTRUCTION [None]
  - RENAL FAILURE ACUTE [None]
  - HAEMATURIA [None]
  - URINARY RETENTION [None]
  - URINARY BLADDER HAEMORRHAGE [None]
